FAERS Safety Report 13813155 (Version 2)
Quarter: 2018Q1

REPORT INFORMATION
  Report Type: Spontaneous
  Country: GB (occurrence: GB)
  Receive Date: 20170731
  Receipt Date: 20180131
  Transmission Date: 20180508
  Serious: Yes (Death)
  Sender: FDA-Public Use
  Company Number: GB-MYLANLABS-2016M1035819

PATIENT
  Sex: Male

DRUGS (3)
  1. CLOZARIL [Suspect]
     Active Substance: CLOZAPINE
     Indication: SCHIZOPHRENIA
     Dosage: UNK
     Route: 048
     Dates: start: 20140214
  2. CLOZARIL [Suspect]
     Active Substance: CLOZAPINE
     Dosage: 2 DF, PM
     Route: 048
  3. CLOZARIL [Suspect]
     Active Substance: CLOZAPINE
     Dosage: 1 DF, AM
     Route: 048

REACTIONS (5)
  - Alcoholic liver disease [Fatal]
  - Depression [Unknown]
  - Disease progression [Fatal]
  - Multiple organ dysfunction syndrome [Fatal]
  - Renal disorder [Unknown]
